FAERS Safety Report 18871311 (Version 1)
Quarter: 2021Q1

REPORT INFORMATION
  Report Type: Spontaneous
  Country: US (occurrence: US)
  Receive Date: 20210209
  Receipt Date: 20210209
  Transmission Date: 20210420
  Serious: Yes (Death)
  Sender: FDA-Public Use
  Company Number: None

PATIENT
  Sex: Male
  Weight: 93.9 kg

DRUGS (22)
  1. ALBUTEROL HFA 2 PUFF 4X/DAY [Concomitant]
     Dates: start: 20201115, end: 20201121
  2. HALOPERIDOL 1MG IV Q6H PRN AGITATION [Concomitant]
     Dates: start: 20201118, end: 20201120
  3. ENOXAPARIN 40MG SUBQ Q12H [Concomitant]
     Dates: start: 20201115, end: 20201117
  4. LEVOFLOXACIN 750MG Q48H [Concomitant]
     Dates: start: 20201115, end: 20201115
  5. FINASTERIDE 5MG QHS [Concomitant]
     Dates: start: 20201115, end: 20201121
  6. VITAMIN C, D3, ZINC [Concomitant]
     Dates: start: 20201115, end: 20201121
  7. ATORVASTATIN 40MG QHS [Concomitant]
     Dates: start: 20201115, end: 20201121
  8. CARVEDILOL 3.125MG PO BID [Concomitant]
     Active Substance: CARVEDILOL
     Dates: start: 20201115, end: 20201121
  9. HEPARIN 7500MG SUBQ Q12H [Concomitant]
     Dates: start: 20201117, end: 20201121
  10. ACETAMINOPHEN 650MG PR Q4H PRN FEVER/PAIN 1?3 [Concomitant]
     Dates: start: 20201115, end: 20201121
  11. BUMETANIDE 1MG PO BID [Concomitant]
     Dates: start: 20201115, end: 20201121
  12. MUCINEX 600MG BID [Concomitant]
     Dates: start: 20201116, end: 20201121
  13. LORAZEPAM 2MG IV Q30MIN PRN ANXIETY [Concomitant]
     Dates: start: 20201120, end: 20201121
  14. REMDESIVIR. [Suspect]
     Active Substance: REMDESIVIR
     Indication: COVID-19
     Dosage: ?          OTHER FREQUENCY:200MG X1, 100MG/D;?
     Route: 042
     Dates: start: 20201115, end: 20201116
  15. CARDIZEM CD 360MG PO DAILY [Concomitant]
     Dates: start: 20201116, end: 20201121
  16. LEXAPRO 10MG PO DAILY [Concomitant]
     Dates: start: 20201116, end: 20201121
  17. ADVAIR HFA 115/21 2 PUFF INH BID [Concomitant]
     Dates: start: 20201115, end: 20201121
  18. ATROVENT HFA 2 PUFFS INH 4X/D [Concomitant]
     Dates: start: 20201115, end: 20201121
  19. MONTELUKAST 10MG PO QHS [Concomitant]
     Dates: start: 20201115, end: 20201121
  20. TAMSULOSIN 0.4MG QHS [Concomitant]
     Dates: start: 20201116, end: 20201121
  21. DEXAMETHASONE 6MG IV DAILY [Concomitant]
     Dates: start: 20201115, end: 20201121
  22. PIP/TAZO 4.5G IV Q8H THEN Q12H [Concomitant]
     Dates: start: 20201115, end: 20201121

REACTIONS (8)
  - Haemoglobin decreased [None]
  - Aspiration [None]
  - Malaise [None]
  - Renal impairment [None]
  - Insomnia [None]
  - Respiratory failure [None]
  - Cardiac failure congestive [None]
  - Agitation [None]
